FAERS Safety Report 8177566-1 (Version None)
Quarter: 2012Q1

REPORT INFORMATION
  Report Type: 
  Country: None (occurrence: None)
  Receive Date: 20120301
  Receipt Date: 20120219
  Transmission Date: 20120608
  Serious: Yes (Death)
  Sender: FDA-Public Use
  Company Number: IL-ROCHE-1040668

PATIENT
  Sex: Male

DRUGS (5)
  1. MIRCERA [Suspect]
     Indication: NEPHROGENIC ANAEMIA
     Dosage: DOSE: 360, LAST DOSE: 25/JAN/2012
     Route: 042
  2. LOSEC (ISRAEL) [Concomitant]
     Indication: ABDOMINAL PAIN UPPER
     Route: 048
     Dates: start: 20100101
  3. CALCIUM CARBONATE [Concomitant]
     Indication: HYPERPARATHYROIDISM
     Route: 048
     Dates: start: 20100101
  4. ALPHA D3 [Concomitant]
     Indication: HYPERPARATHYROIDISM
     Dosage: DOSE: 0.25
     Route: 048
     Dates: start: 20100101
  5. BISOPROLOL FUMARATE [Concomitant]
     Indication: HYPERTENSION
     Route: 048
     Dates: start: 20100101

REACTIONS (1)
  - SEPTIC SHOCK [None]
